FAERS Safety Report 9633944 (Version 1)
Quarter: 2013Q4

REPORT INFORMATION
  Report Type: Spontaneous
  Country: AT (occurrence: AT)
  Receive Date: 20131021
  Receipt Date: 20131021
  Transmission Date: 20140711
  Serious: Yes (Other)
  Sender: FDA-Public Use
  Company Number: AT-PFIZER INC-2013294794

PATIENT
  Age: 24 Year
  Sex: Female
  Weight: 64 kg

DRUGS (18)
  1. TRESLEEN [Suspect]
     Dosage: 50 MG, UNK
     Dates: start: 20130613
  2. TEMESTA [Suspect]
     Dosage: 2.5 MG, UNK
     Dates: start: 20130605, end: 20130605
  3. TEMESTA [Suspect]
     Dosage: 5 MG, UNK
     Dates: start: 20130606, end: 20130606
  4. TEMESTA [Suspect]
     Dosage: 7.5 MG, UNK
     Dates: start: 20130607, end: 20130613
  5. TEMESTA [Suspect]
     Dosage: 6.25 MG, UNK
     Dates: start: 20130614, end: 20130614
  6. TEMESTA [Suspect]
     Dosage: 5 MG, UNK
     Dates: start: 20130615, end: 20130623
  7. TEMESTA [Suspect]
     Dosage: 3.75 MG, UNK
     Dates: start: 20130624, end: 20130625
  8. TEMESTA [Suspect]
     Dosage: 2.5 MG, UNK
     Dates: start: 20130626, end: 20130702
  9. TEMESTA [Suspect]
     Dosage: 3.75 MG, UNK
     Dates: start: 20130703, end: 20130703
  10. TEMESTA [Suspect]
     Dosage: 5 MG, UNK
     Dates: start: 20130704
  11. ABILIFY [Suspect]
     Dosage: 10 MG, UNK
     Dates: start: 20130703, end: 20130707
  12. ABILIFY [Suspect]
     Dosage: 20 MG, UNK
     Dates: start: 20130708, end: 20130709
  13. ABILIFY [Suspect]
     Dosage: 30 MG, UNK
     Dates: start: 20130710, end: 20130715
  14. TRITTICO RETARD [Suspect]
     Dosage: 150 MG, UNK
     Dates: start: 20130606, end: 20130715
  15. RISPERDAL [Suspect]
     Dosage: 6 MG, UNK
     Dates: start: 20130606, end: 20130606
  16. RISPERDAL [Suspect]
     Dosage: 8 MG, UNK
     Dates: start: 20130607, end: 20130614
  17. RISPERDAL [Suspect]
     Dosage: 6 MG, UNK
     Dates: start: 20130615, end: 20130709
  18. RISPERDAL [Suspect]
     Dosage: 4 MG, UNK
     Dates: start: 20130710

REACTIONS (2)
  - Eyelid oedema [Recovered/Resolved]
  - Face oedema [Recovered/Resolved]
